FAERS Safety Report 23371680 (Version 2)
Quarter: 2024Q1

REPORT INFORMATION
  Report Type: Spontaneous
  Country: US (occurrence: US)
  Receive Date: 20240105
  Receipt Date: 20240206
  Transmission Date: 20240410
  Serious: No
  Sender: FDA-Public Use
  Company Number: US-PFIZER INC-PV202300132344

PATIENT
  Age: 46 Year
  Sex: Female
  Weight: 86.182 kg

DRUGS (1)
  1. CIBINQO [Suspect]
     Active Substance: ABROCITINIB
     Indication: Eczema
     Dosage: 100 MG 1 DAILY
     Route: 048
     Dates: start: 2023

REACTIONS (2)
  - Condition aggravated [Unknown]
  - Sensitivity to weather change [Unknown]
